FAERS Safety Report 6714610-X (Version None)
Quarter: 2010Q2

REPORT INFORMATION
  Report Type: 
  Country: None (occurrence: None)
  Receive Date: 20100507
  Receipt Date: 20100429
  Transmission Date: 20101027
  Serious: Yes (Hospitalization)
  Sender: FDA-Public Use
  Company Number: US-BIOGENIDEC-2010BI012467

PATIENT
  Age: 58 Year
  Sex: Female
  Weight: 94 kg

DRUGS (3)
  1. AVONEX [Suspect]
     Indication: MULTIPLE SCLEROSIS
     Route: 030
     Dates: start: 19940101
  2. AVONEX [Suspect]
     Route: 030
  3. AVONEX [Suspect]
     Route: 030

REACTIONS (4)
  - ABASIA [None]
  - DYSPNOEA [None]
  - MUSCULAR WEAKNESS [None]
  - PULMONARY OEDEMA [None]
